FAERS Safety Report 23992465 (Version 1)
Quarter: 2024Q2

REPORT INFORMATION
  Report Type: Spontaneous
  Country: US (occurrence: US)
  Receive Date: 20240620
  Receipt Date: 20240620
  Transmission Date: 20240716
  Serious: Yes (Other)
  Sender: FDA-Public Use
  Company Number: US-ALCON LABORATORIES-ALC2024US002913

PATIENT
  Sex: Male

DRUGS (1)
  1. SYSTANE HYDRATION PF PRESERVATIVE FREE [Suspect]
     Active Substance: POLYETHYLENE GLYCOL 400\PROPYLENE GLYCOL
     Indication: Product used for unknown indication
     Dosage: UNK
     Route: 047
     Dates: start: 20211210

REACTIONS (5)
  - Blindness unilateral [Not Recovered/Not Resolved]
  - Face injury [Not Recovered/Not Resolved]
  - Skin burning sensation [Not Recovered/Not Resolved]
  - Periorbital pain [Not Recovered/Not Resolved]
  - Periorbital injury [Not Recovered/Not Resolved]

NARRATIVE: CASE EVENT DATE: 20211210
